FAERS Safety Report 17891165 (Version 1)
Quarter: 2020Q2

REPORT INFORMATION
  Report Type: Spontaneous
  Country: US (occurrence: US)
  Receive Date: 20200612
  Receipt Date: 20200612
  Transmission Date: 20200714
  Serious: No
  Sender: FDA-Public Use
  Company Number: US-PERRIGO-19US013798

PATIENT
  Age: 53 Year
  Sex: Female
  Weight: 68.03 kg

DRUGS (7)
  1. MINOXIDIL. [Suspect]
     Active Substance: MINOXIDIL
     Indication: ALOPECIA
     Dosage: UNKNOWN, QD
     Route: 061
     Dates: start: 20191022
  2. ATORVASTATIN [Concomitant]
     Active Substance: ATORVASTATIN
     Indication: BLOOD CHOLESTEROL INCREASED
     Dosage: UNK
     Route: 065
     Dates: start: 201908
  3. PAROXETINE. [Concomitant]
     Active Substance: PAROXETINE
     Indication: HOT FLUSH
     Dosage: 10 MG, UNK
     Route: 065
     Dates: start: 201906
  4. NABUMETONE. [Concomitant]
     Active Substance: NABUMETONE
     Indication: FIBROMYALGIA
     Dosage: 500 MG, UNK
     Route: 065
     Dates: start: 201801
  5. GABAPENTIN. [Concomitant]
     Active Substance: GABAPENTIN
     Indication: FIBROMYALGIA
     Dosage: 1800 MG, QD
     Route: 065
     Dates: start: 201801
  6. MINOXIDIL. [Suspect]
     Active Substance: MINOXIDIL
     Indication: ALOPECIA
     Dosage: 1 ML, NIGHTLY
     Route: 061
     Dates: start: 20191105
  7. MINOXIDIL. [Suspect]
     Active Substance: MINOXIDIL
     Dosage: 0.5 ML, QD
     Route: 061

REACTIONS (5)
  - Product administered at inappropriate site [Not Recovered/Not Resolved]
  - Overdose [Not Recovered/Not Resolved]
  - Hypertrichosis [Unknown]
  - Hair colour changes [Not Recovered/Not Resolved]
  - Off label use [Not Recovered/Not Resolved]

NARRATIVE: CASE EVENT DATE: 20191022
